FAERS Safety Report 7086399-9 (Version None)
Quarter: 2010Q4

REPORT INFORMATION
  Report Type: 
  Country: None (occurrence: None)
  Receive Date: 20101105
  Receipt Date: 20101027
  Transmission Date: 20110411
  Serious: Yes (Hospitalization, Other)
  Sender: FDA-Public Use
  Company Number: GB-JNJFOC-20100800171

PATIENT
  Age: 67 Year
  Sex: Female

DRUGS (5)
  1. REMICADE [Suspect]
     Indication: INTESTINAL FISTULA
     Route: 042
  2. REMICADE [Suspect]
     Route: 042
  3. REMICADE [Suspect]
     Indication: CROHN'S DISEASE
     Route: 042
  4. REMICADE [Suspect]
     Route: 042
  5. PARACETAMOL [Concomitant]

REACTIONS (10)
  - ABDOMINAL PAIN [None]
  - BACK PAIN [None]
  - C-REACTIVE PROTEIN INCREASED [None]
  - CEREBROVASCULAR ACCIDENT [None]
  - COUGH [None]
  - DYSPNOEA [None]
  - FLUSHING [None]
  - GROIN PAIN [None]
  - INFUSION RELATED REACTION [None]
  - PAIN [None]
